FAERS Safety Report 9233791 (Version 3)
Quarter: 2013Q3

REPORT INFORMATION
  Report Type: Spontaneous
  Country: US (occurrence: US)
  Receive Date: 20130416
  Receipt Date: 20130703
  Transmission Date: 20140515
  Serious: Yes (Hospitalization, Other)
  Sender: FDA-Public Use
  Company Number: US-UCBSA-082714

PATIENT
  Age: 22 Year
  Sex: Male
  Weight: 117 kg

DRUGS (4)
  1. VIMPAT [Suspect]
     Dosage: STRENGTH:200
     Route: 048
  2. KEPPRA XR [Suspect]
     Dosage: STRENGTH: 500
  3. KEPPRA XR [Suspect]
  4. KEPPRA XR [Suspect]
     Route: 048

REACTIONS (3)
  - Convulsion [Unknown]
  - Rhabdomyolysis [Recovered/Resolved]
  - Inappropriate schedule of drug administration [Unknown]
